FAERS Safety Report 11109778 (Version 1)
Quarter: 2015Q2

REPORT INFORMATION
  Report Type: Spontaneous
  Country: US (occurrence: None)
  Receive Date: 20150512
  Receipt Date: 20150512
  Transmission Date: 20150821
  Serious: No
  Sender: FDA-Public Use
  Company Number: None

PATIENT
  Age: 66 Year
  Sex: Male

DRUGS (14)
  1. CHOLESTYRAMINE LITE 4 AM PK + POW PAR N.D.C 49884046665 [Suspect]
     Active Substance: CHOLESTYRAMINE
     Indication: GASTROINTESTINAL DISORDER
     Dosage: 4 GM?POW?1-DAY?BY MOUTH WITH WATER
     Route: 048
     Dates: start: 20150417, end: 20150418
  2. DICYCLOMINE [Concomitant]
     Active Substance: DICYCLOMINE HYDROCHLORIDE
  3. ONE DAY MENS VITAMINS [Concomitant]
  4. OMEPRAZOLE. [Concomitant]
     Active Substance: OMEPRAZOLE
  5. ACLQON ONE DAY [Concomitant]
  6. PANTOPRAZOLE SOD [Concomitant]
     Active Substance: PANTOPRAZOLE SODIUM
  7. METFORMIN [Concomitant]
     Active Substance: METFORMIN HYDROCHLORIDE
  8. IRBESARTAN. [Concomitant]
     Active Substance: IRBESARTAN
  9. ALLERGY RELIEF EQUATE [Concomitant]
  10. ASPIRIN. [Concomitant]
     Active Substance: ASPIRIN
  11. GABAPENTIN. [Concomitant]
     Active Substance: GABAPENTIN
  12. KETOCONAZOLE. [Concomitant]
     Active Substance: KETOCONAZOLE
  13. CITALOPRAM [Concomitant]
     Active Substance: CITALOPRAM HYDROBROMIDE
  14. MOMETASOPROLE [Concomitant]

REACTIONS (2)
  - Abdominal distension [None]
  - Pain [None]

NARRATIVE: CASE EVENT DATE: 20150417
